FAERS Safety Report 18690379 (Version 1)
Quarter: 2020Q4

REPORT INFORMATION
  Report Type: Report from Study
  Country: US (occurrence: US)
  Receive Date: 20201231
  Receipt Date: 20201231
  Transmission Date: 20210114
  Serious: Yes (Other)
  Sender: FDA-Public Use
  Company Number: NVSC2020US337178

PATIENT
  Sex: Male

DRUGS (1)
  1. GLEEVEC [Suspect]
     Active Substance: IMATINIB MESYLATE
     Indication: GASTROINTESTINAL HAEMORRHAGE
     Dosage: 400 MG
     Route: 065

REACTIONS (2)
  - Gastrointestinal haemorrhage [Unknown]
  - Product use in unapproved indication [Unknown]
